FAERS Safety Report 5199071-7 (Version None)
Quarter: 2006Q4

REPORT INFORMATION
  Report Type: 
  Country: None (occurrence: None)
  Receive Date: 20060919
  Receipt Date: 20060410
  Transmission Date: 20070319
  Serious: Yes (Other)
  Sender: FDA-Public Use
  Company Number: HQWYE808112APR06

PATIENT
  Age: 24 Year
  Sex: Female
  Weight: 158.9 kg

DRUGS (2)
  1. ADVIL [Suspect]
     Indication: HEADACHE
     Dosage: 2 LIQUI-GELS TWICE A DAY, ORAL
     Route: 048
     Dates: start: 20060401, end: 20060407
  2. ADVIL [Suspect]
     Indication: TOOTHACHE
     Dosage: 2 LIQUI-GELS TWICE A DAY, ORAL
     Route: 048
     Dates: start: 20060401, end: 20060407

REACTIONS (1)
  - GLOSSODYNIA [None]
